FAERS Safety Report 10484051 (Version 2)
Quarter: 2014Q4

REPORT INFORMATION
  Report Type: Spontaneous
  Country: US (occurrence: US)
  Receive Date: 20140930
  Receipt Date: 20141105
  Transmission Date: 20150528
  Serious: Yes (Other)
  Sender: FDA-Public Use
  Company Number: US-PFIZER INC-2014267961

PATIENT
  Age: 84 Year
  Sex: Female
  Weight: 40.82 kg

DRUGS (1)
  1. XALATAN [Suspect]
     Active Substance: LATANOPROST
     Indication: GLAUCOMA
     Dosage: 1 GTT, DAILY (IN EACH EYE IN EVENING AND PRESCRIBED TAKE IT EVERY NIGHT)
     Route: 047
     Dates: end: 201409

REACTIONS (5)
  - Fall [Recovering/Resolving]
  - Incorrect dose administered [Recovering/Resolving]
  - Pain in extremity [Recovered/Resolved]
  - Balance disorder [Recovering/Resolving]
  - Drug dependence [Recovering/Resolving]

NARRATIVE: CASE EVENT DATE: 201409
